FAERS Safety Report 14571870 (Version 2)
Quarter: 2018Q1

REPORT INFORMATION
  Report Type: Spontaneous
  Country: US (occurrence: US)
  Receive Date: 20180226
  Receipt Date: 20180227
  Transmission Date: 20180509
  Serious: No
  Sender: FDA-Public Use
  Company Number: US-PFIZER INC-2018080427

PATIENT
  Age: 8 Year
  Sex: Male
  Weight: 18.14 kg

DRUGS (1)
  1. QUILLICHEW ER [Suspect]
     Active Substance: METHYLPHENIDATE HYDROCHLORIDE
     Indication: ATTENTION DEFICIT/HYPERACTIVITY DISORDER
     Dosage: 10 MG, 1X/DAY
     Route: 048
     Dates: start: 201802

REACTIONS (3)
  - Drug ineffective [Unknown]
  - Aggression [Unknown]
  - Irritability [Unknown]
